FAERS Safety Report 8550365 (Version 3)
Quarter: 2014Q1

REPORT INFORMATION
  Report Type: Report from Study
  Country: JP (occurrence: JP)
  Receive Date: 20120507
  Receipt Date: 20140126
  Transmission Date: 20141002
  Serious: Yes (Death, Life-Threatening)
  Sender: FDA-Public Use
  Company Number: JP-AMGEN-JPNCT2012028345

PATIENT
  Age: 57 Year
  Sex: Female
  Weight: 51 kg

DRUGS (9)
  1. ROMIPLOSTIM - KHK [Suspect]
     Indication: IMMUNE THROMBOCYTOPENIC PURPURA
     Dosage: 200 MUG/KG, QWK
     Route: 058
     Dates: start: 20110720, end: 20111228
  2. PREDONINE [Concomitant]
     Indication: IMMUNE THROMBOCYTOPENIC PURPURA
     Dosage: 10 MG, UNK
     Route: 048
     Dates: start: 20080623, end: 20120103
  3. URSO [Concomitant]
     Indication: LIVER DISORDER
     Dosage: UNK
     Route: 048
  4. KOLANTYL [Concomitant]
     Indication: PROPHYLAXIS
     Dosage: UNK
     Route: 048
  5. SEIBULE [Concomitant]
     Indication: DIABETES MELLITUS
     Dosage: UNK
     Route: 048
  6. TAKEPRON [Concomitant]
     Indication: PROPHYLAXIS
     Dosage: UNK
     Route: 048
  7. DIOVAN [Concomitant]
     Indication: HYPERTENSION
     Dosage: UNK
     Route: 048
  8. PLETAAL [Concomitant]
     Indication: PROPHYLAXIS
     Dosage: UNK
     Route: 048
  9. LASIX [Concomitant]
     Indication: OEDEMA
     Dosage: UNK
     Route: 048

REACTIONS (4)
  - Sepsis [Fatal]
  - Cerebral infarction [Not Recovered/Not Resolved]
  - Anaemia [Unknown]
  - White blood cell count increased [Unknown]
